FAERS Safety Report 5213241-0 (Version None)
Quarter: 2007Q1

REPORT INFORMATION
  Report Type: 
  Country: None (occurrence: None)
  Receive Date: 20070116
  Receipt Date: 20070109
  Transmission Date: 20070707
  Serious: No
  Sender: FDA-Public Use
  Company Number: TAP2007Q00041

PATIENT
  Sex: Male

DRUGS (1)
  1. PREVACID [Suspect]
     Indication: DRUG USE FOR UNKNOWN INDICATION
     Dosage: ORAL
     Route: 048
     Dates: start: 20060901

REACTIONS (1)
  - VISION BLURRED [None]
